FAERS Safety Report 21041351 (Version 1)
Quarter: 2022Q3

REPORT INFORMATION
  Report Type: Spontaneous
  Country: US (occurrence: None)
  Receive Date: 20220705
  Receipt Date: 20220705
  Transmission Date: 20221026
  Serious: Yes (Other)
  Sender: FDA-Public Use
  Company Number: US-ROCHE-3131351

PATIENT

DRUGS (2)
  1. ERIVEDGE [Suspect]
     Active Substance: VISMODEGIB
     Indication: Basal cell carcinoma
     Dosage: YES
     Route: 048
  2. OXYGEN [Concomitant]
     Active Substance: OXYGEN
     Indication: Lung neoplasm malignant
     Dosage: YES
     Route: 065

REACTIONS (2)
  - Dyspnoea [Unknown]
  - Lung neoplasm malignant [Unknown]
